FAERS Safety Report 10855279 (Version 2)
Quarter: 2015Q1

REPORT INFORMATION
  Report Type: Report from Study
  Country: ZA (occurrence: ZA)
  Receive Date: 20150223
  Receipt Date: 20150227
  Transmission Date: 20150721
  Serious: Yes (Death, Hospitalization, Other)
  Sender: FDA-Public Use
  Company Number: ZA-PFIZER INC-2015062895

PATIENT
  Age: 44 Year
  Sex: Male
  Weight: 85 kg

DRUGS (1)
  1. CRIZOTINIB [Suspect]
     Active Substance: CRIZOTINIB
     Indication: LUNG ADENOCARCINOMA METASTATIC

REACTIONS (3)
  - Pneumonia [Not Recovered/Not Resolved]
  - Disease progression [Fatal]
  - Lung adenocarcinoma metastatic [Fatal]

NARRATIVE: CASE EVENT DATE: 20141205
